FAERS Safety Report 8607690-8 (Version None)
Quarter: 2012Q3

REPORT INFORMATION
  Report Type: 
  Country: None (occurrence: None)
  Receive Date: 20120821
  Receipt Date: 20120816
  Transmission Date: 20120928
  Serious: Yes (Death)
  Sender: FDA-Public Use
  Company Number: CO-PFIZER INC-2012201067

PATIENT
  Sex: Female

DRUGS (1)
  1. TORISEL [Suspect]

REACTIONS (1)
  - DEATH [None]
